FAERS Safety Report 16849355 (Version 2)
Quarter: 2020Q3

REPORT INFORMATION
  Report Type: Spontaneous
  Country: US (occurrence: US)
  Receive Date: 20190925
  Receipt Date: 20200813
  Transmission Date: 20201102
  Serious: Yes (Other)
  Sender: FDA-Public Use
  Company Number: US-GILEAD-2019-0429310

PATIENT
  Age: 36 Year
  Sex: Female
  Weight: 148.75 kg

DRUGS (17)
  1. METFORMIN [Concomitant]
     Active Substance: METFORMIN HYDROCHLORIDE
  2. GABAPENTIN. [Concomitant]
     Active Substance: GABAPENTIN
  3. GLIPIZIDE. [Concomitant]
     Active Substance: GLIPIZIDE
  4. COMPLERA [Suspect]
     Active Substance: EMTRICITABINE\RILPIVIRINE HYDROCHLORIDE\TENOFOVIR DISOPROXIL FUMARATE
     Indication: HIV INFECTION
     Dosage: UNK
     Route: 048
     Dates: start: 2011, end: 20170126
  5. LISINOPRIL. [Concomitant]
     Active Substance: LISINOPRIL
  6. SPIRONOLACTONE. [Concomitant]
     Active Substance: SPIRONOLACTONE
  7. OXYBUTYNIN. [Concomitant]
     Active Substance: OXYBUTYNIN CHLORIDE
  8. OMEPRAZOLE. [Concomitant]
     Active Substance: OMEPRAZOLE
  9. CARVEDILOL. [Concomitant]
     Active Substance: CARVEDILOL
  10. NITROGLYCERIN. [Concomitant]
     Active Substance: NITROGLYCERIN
  11. LANTUS [Concomitant]
     Active Substance: INSULIN GLARGINE
  12. VENTOLIN HFA [Concomitant]
     Active Substance: ALBUTEROL SULFATE
  13. RANITIDINE. [Concomitant]
     Active Substance: RANITIDINE
  14. GENVOYA [Concomitant]
     Active Substance: COBICISTAT\ELVITEGRAVIR\EMTRICITABINE\TENOFOVIR ALAFENAMIDE FUMARATE
  15. SYMBICORT [Concomitant]
     Active Substance: BUDESONIDE\FORMOTEROL FUMARATE DIHYDRATE
  16. SENEXON E [Concomitant]
  17. ATORVASTATIN [Concomitant]
     Active Substance: ATORVASTATIN

REACTIONS (8)
  - Anhedonia [Not Recovered/Not Resolved]
  - Economic problem [Not Recovered/Not Resolved]
  - Anxiety [Not Recovered/Not Resolved]
  - Bone density decreased [Unknown]
  - Pain [Not Recovered/Not Resolved]
  - Chronic kidney disease [Unknown]
  - Emotional distress [Not Recovered/Not Resolved]
  - Renal failure [Not Recovered/Not Resolved]
